FAERS Safety Report 4678049-3 (Version None)
Quarter: 2005Q2

REPORT INFORMATION
  Report Type: 
  Country: None (occurrence: None)
  Receive Date: 20050531
  Receipt Date: 20050310
  Transmission Date: 20051028
  Serious: Yes (Hospitalization)
  Sender: FDA-Public Use
  Company Number: US-MERCK-0503USA01919

PATIENT
  Age: 44 Year
  Sex: Male
  Weight: 75 kg

DRUGS (11)
  1. VIOXX [Suspect]
     Indication: CHEST WALL PAIN
     Route: 048
     Dates: start: 20010726, end: 20040503
  2. VIOXX [Suspect]
     Route: 048
  3. VIOXX [Suspect]
     Indication: ARTHRALGIA
     Route: 048
     Dates: start: 20010726, end: 20040503
  4. VIOXX [Suspect]
     Route: 048
  5. ATENOLOL [Concomitant]
     Indication: HYPERTENSION
     Route: 065
  6. SKELAXIN [Concomitant]
     Route: 048
     Dates: start: 20010726
  7. PRILOSEC [Concomitant]
     Indication: GASTROOESOPHAGEAL REFLUX DISEASE
     Route: 048
     Dates: start: 20010726
  8. CELEBREX [Concomitant]
     Route: 065
     Dates: start: 20000101, end: 20040101
  9. NICOTROL [Concomitant]
     Indication: EX-SMOKER
     Route: 065
  10. NEXIUM [Concomitant]
     Route: 065
  11. ASPIRIN [Concomitant]
     Route: 065
     Dates: start: 19971201

REACTIONS (13)
  - ABDOMINAL PAIN LOWER [None]
  - ANGINA UNSTABLE [None]
  - BRONCHITIS [None]
  - CHOLELITHIASIS [None]
  - CORONARY ARTERY DISEASE [None]
  - EMOTIONAL DISTRESS [None]
  - GASTROENTERITIS [None]
  - HAEMATOMA [None]
  - HYPERCHOLESTEROLAEMIA [None]
  - HYPERLIPIDAEMIA [None]
  - MYOCARDIAL INFARCTION [None]
  - PALPITATIONS [None]
  - STRESS FRACTURE [None]
